FAERS Safety Report 9890155 (Version 2)
Quarter: 2014Q1

REPORT INFORMATION
  Report Type: Spontaneous
  Country: US (occurrence: US)
  Receive Date: 20140212
  Receipt Date: 20140326
  Transmission Date: 20141002
  Serious: No
  Sender: FDA-Public Use
  Company Number: US-BIOGENIDEC-2014BI011580

PATIENT
  Age: 36 Year
  Sex: Male

DRUGS (2)
  1. TECFIDERA [Suspect]
     Indication: MULTIPLE SCLEROSIS
     Route: 048
     Dates: start: 20130617
  2. TECFIDERA [Suspect]
     Indication: MULTIPLE SCLEROSIS
     Route: 048
     Dates: end: 20131226

REACTIONS (6)
  - Drug ineffective [Unknown]
  - Pain [Unknown]
  - Muscular weakness [Unknown]
  - Immobile [Unknown]
  - Vision blurred [Unknown]
  - Multiple sclerosis relapse [Unknown]
